FAERS Safety Report 17540368 (Version 1)
Quarter: 2020Q1

REPORT INFORMATION
  Report Type: Spontaneous
  Country: SI (occurrence: SI)
  Receive Date: 20200313
  Receipt Date: 20200313
  Transmission Date: 20200409
  Serious: Yes (Other)
  Sender: FDA-Public Use
  Company Number: SI-BAYER-2020-041767

PATIENT
  Sex: Male

DRUGS (1)
  1. NEXAVAR [Suspect]
     Active Substance: SORAFENIB
     Indication: CLEAR CELL RENAL CELL CARCINOMA
     Dosage: UNK
     Dates: start: 201308

REACTIONS (5)
  - Epistaxis [None]
  - Hypothyroidism [None]
  - Hypertension [None]
  - Diarrhoea [None]
  - Renal cell carcinoma [None]

NARRATIVE: CASE EVENT DATE: 201308
